FAERS Safety Report 18275748 (Version 3)
Quarter: 2020Q3

REPORT INFORMATION
  Report Type: Spontaneous
  Country: US (occurrence: US)
  Receive Date: 20200917
  Receipt Date: 20200924
  Transmission Date: 20201103
  Serious: No
  Sender: FDA-Public Use
  Company Number: NVSC2020US251769

PATIENT
  Sex: Male

DRUGS (1)
  1. XIIDRA [Suspect]
     Active Substance: LIFITEGRAST
     Indication: PRODUCT USED FOR UNKNOWN INDICATION
     Dosage: UNK
     Route: 065

REACTIONS (6)
  - Product packaging issue [Unknown]
  - Hypersensitivity [Unknown]
  - Product use complaint [Unknown]
  - Eye pain [Unknown]
  - Incorrect dose administered [Unknown]
  - Ocular hyperaemia [Unknown]
